FAERS Safety Report 4885679-2 (Version None)
Quarter: 2006Q1

REPORT INFORMATION
  Report Type: 
  Country: None (occurrence: None)
  Receive Date: 20060119
  Receipt Date: 20060109
  Transmission Date: 20060701
  Serious: Yes (Other)
  Sender: FDA-Public Use
  Company Number: US-ABBOTT-06P-163-0322695-00

PATIENT

DRUGS (4)
  1. REMIFENTANIL [Suspect]
     Indication: SEDATION
     Dosage: BOLUS DOSE
     Route: 042
  2. REMIFENTANIL [Suspect]
     Indication: ANALGESIC EFFECT
     Dosage: INFUSION
     Route: 042
  3. BENZODIAZEPINE [Suspect]
     Indication: SEDATION
  4. OXYGEN [Concomitant]
     Indication: DRUG USE FOR UNKNOWN INDICATION

REACTIONS (2)
  - APNOEA [None]
  - HYPOXIA [None]
